FAERS Safety Report 7105307-5 (Version None)
Quarter: 2010Q4

REPORT INFORMATION
  Report Type: 
  Country: None (occurrence: None)
  Receive Date: 20101108
  Receipt Date: 20101029
  Transmission Date: 20110411
  Serious: Yes (Life-Threatening, Hospitalization, Other)
  Sender: FDA-Public Use
  Company Number: 2010AC000567

PATIENT
  Age: 58 Year
  Sex: Female

DRUGS (35)
  1. DIGOXIN [Suspect]
     Indication: ATRIAL FIBRILLATION
     Dosage: 0.125 MG; QD; PO
     Route: 048
     Dates: start: 20040301
  2. DIGOXIN [Suspect]
     Dosage: 0.125 MGQD; PO
     Route: 048
     Dates: start: 20080525, end: 20080602
  3. DIGOXIN [Suspect]
     Dosage: 0.250 MG; QD; PO
     Route: 048
     Dates: start: 20080603, end: 20080820
  4. DIGOXIN [Suspect]
     Dosage: 0.250 MG; QD; PO
     Route: 048
     Dates: end: 20080523
  5. DIGOXIN [Suspect]
     Dosage: 0.125 MG; QD; PO
     Route: 048
     Dates: start: 20080827, end: 20080901
  6. CARTIA XT [Concomitant]
  7. VASOTEC [Concomitant]
  8. LIPITOR [Concomitant]
  9. PRAVACHOL [Concomitant]
  10. TOPROL-XL [Concomitant]
  11. COUMADIN [Concomitant]
  12. LASIX [Concomitant]
  13. POTASSIUM CHLORIDE [Concomitant]
  14. ACTOS [Concomitant]
  15. GLUCOPHAGE [Concomitant]
  16. SOMA [Concomitant]
  17. VICODIN [Concomitant]
  18. ULTRAM [Concomitant]
  19. CELEBREX [Concomitant]
  20. CARAFATE [Concomitant]
  21. TANDEM [Concomitant]
  22. BACTRIM [Concomitant]
  23. STEROID INJECTION [Concomitant]
  24. MUSCLE RELAXERS [Concomitant]
  25. NARCOTICS [Concomitant]
  26. INSULIN [Concomitant]
  27. GLUCOSE [Concomitant]
  28. BICARB [Concomitant]
  29. KAYEXALATE [Concomitant]
  30. DOPAMINE [Concomitant]
  31. NEO-SYNEPHRINOL [Concomitant]
  32. AMIODARONE [Concomitant]
  33. FRESH FROZEN PLASMA [Concomitant]
  34. VITAMIN K TAB [Concomitant]
  35. BLOOD TRANSFUSION [Concomitant]

REACTIONS (60)
  - ABDOMINAL HERNIA [None]
  - AORTIC ARTERIOSCLEROSIS [None]
  - AORTIC VALVE STENOSIS [None]
  - ASCITES [None]
  - ATRIAL FIBRILLATION [None]
  - AZOTAEMIA [None]
  - BACK PAIN [None]
  - BACTERIAL TEST POSITIVE [None]
  - BRUNNER'S GLAND HYPERPLASIA [None]
  - CARDIAC FAILURE CONGESTIVE [None]
  - CARDIOMEGALY [None]
  - CARDIOMYOPATHY [None]
  - CHOLELITHIASIS [None]
  - COAGULOPATHY [None]
  - COLONIC POLYP [None]
  - DEHYDRATION [None]
  - DEVICE RELATED INFECTION [None]
  - DILATATION VENTRICULAR [None]
  - DIVERTICULUM [None]
  - FLUID OVERLOAD [None]
  - GASTRIC ULCER [None]
  - GASTRITIS [None]
  - GASTROINTESTINAL TELANGIECTASIA [None]
  - HAEMODIALYSIS [None]
  - HAEMORRHAGIC ANAEMIA [None]
  - HELICOBACTER TEST POSITIVE [None]
  - HEPATOSPLENOMEGALY [None]
  - HYPERKALAEMIA [None]
  - HYPOTENSION [None]
  - HYPOVOLAEMIA [None]
  - HYPOXIA [None]
  - INFECTION [None]
  - INTERNATIONAL NORMALISED RATIO DECREASED [None]
  - INTERNATIONAL NORMALISED RATIO INCREASED [None]
  - LARGE INTESTINAL ULCER [None]
  - LEFT ATRIAL DILATATION [None]
  - LEFT VENTRICULAR DYSFUNCTION [None]
  - MESENTERIC ARTERIOSCLEROSIS [None]
  - MITRAL VALVE INCOMPETENCE [None]
  - MUSCULOSKELETAL PAIN [None]
  - NEPHROGENIC ANAEMIA [None]
  - PULMONARY CONGESTION [None]
  - PULMONARY HYPERTENSION [None]
  - RENAL ARTERY ARTERIOSCLEROSIS [None]
  - RENAL FAILURE ACUTE [None]
  - RENAL FAILURE CHRONIC [None]
  - RENAL TUBULAR NECROSIS [None]
  - RIGHT ATRIAL DILATATION [None]
  - SHOCK [None]
  - SHOCK HAEMORRHAGIC [None]
  - SINUS BRADYCARDIA [None]
  - STAPHYLOCOCCUS TEST POSITIVE [None]
  - SYNCOPE [None]
  - TACHYCARDIA [None]
  - THERAPEUTIC AGENT TOXICITY [None]
  - TRICUSPID VALVE INCOMPETENCE [None]
  - TUBULOINTERSTITIAL NEPHRITIS [None]
  - UPPER GASTROINTESTINAL HAEMORRHAGE [None]
  - URINARY TRACT INFECTION [None]
  - UROSEPSIS [None]
